FAERS Safety Report 12940497 (Version 6)
Quarter: 2018Q3

REPORT INFORMATION
  Report Type: Report from Study
  Country: US (occurrence: US)
  Receive Date: 20161114
  Receipt Date: 20180925
  Transmission Date: 20181010
  Serious: Yes (Hospitalization)
  Sender: FDA-Public Use
  Company Number: US-ACTELION-A-US2016-145260

PATIENT
  Age: 61 Year
  Sex: Female

DRUGS (32)
  1. ACETAMINOPHEN W/HYDROCODONE [Concomitant]
     Active Substance: ACETAMINOPHEN\HYDROCODONE
  2. MYCOPHENOLATE [Concomitant]
     Active Substance: MYCOPHENOLIC ACID
  3. BACLOFEN. [Concomitant]
     Active Substance: BACLOFEN
  4. DEMEROL [Concomitant]
     Active Substance: MEPERIDINE HYDROCHLORIDE
  5. CORTISONE [Suspect]
     Active Substance: CORTISONE\HYDROCORTISONE
     Indication: PRODUCT USED FOR UNKNOWN INDICATION
     Route: 065
  6. NADOLOL. [Concomitant]
     Active Substance: NADOLOL
  7. SPIRONOLACTONE. [Concomitant]
     Active Substance: SPIRONOLACTONE
  8. PROGRAF [Concomitant]
     Active Substance: TACROLIMUS\TACROLIMUS ANHYDROUS
  9. HUMALOG [Concomitant]
     Active Substance: INSULIN LISPRO
  10. ALBUTEROL. [Concomitant]
     Active Substance: ALBUTEROL
  11. ONDANSETRON [Concomitant]
     Active Substance: ONDANSETRON
  12. ADCIRCA [Concomitant]
     Active Substance: TADALAFIL
  13. MULTIVITAMIN [Concomitant]
     Active Substance: VITAMINS
  14. CEFDINIR. [Concomitant]
     Active Substance: CEFDINIR
  15. ADVAIR HFA [Concomitant]
     Active Substance: FLUTICASONE PROPIONATE\SALMETEROL XINAFOATE
  16. MYFORTIC [Concomitant]
     Active Substance: MYCOPHENOLATE SODIUM
  17. MORPHINE [Concomitant]
     Active Substance: MORPHINE
  18. PREDNISONE. [Concomitant]
     Active Substance: PREDNISONE
  19. AMITRIPTYLINE [Concomitant]
     Active Substance: AMITRIPTYLINE
  20. FUROSEMIDE. [Concomitant]
     Active Substance: FUROSEMIDE
  21. INCRUSE ELLIPTA [Concomitant]
     Active Substance: UMECLIDINIUM BROMIDE
  22. ATOVAQUONE. [Concomitant]
     Active Substance: ATOVAQUONE
  23. OXYGEN. [Concomitant]
     Active Substance: OXYGEN
     Route: 055
  24. ELAVIL [Concomitant]
     Active Substance: AMITRIPTYLINE HYDROCHLORIDE
  25. OPSUMIT [Suspect]
     Active Substance: MACITENTAN
     Indication: PULMONARY ARTERIAL HYPERTENSION
     Dosage: 10 MG, QD
     Route: 048
     Dates: start: 201606
  26. LORAZEPAM. [Concomitant]
     Active Substance: LORAZEPAM
  27. GABAPENTIN. [Concomitant]
     Active Substance: GABAPENTIN
  28. CYCLOSPORINE. [Concomitant]
     Active Substance: CYCLOSPORINE
  29. HYDROCODONE [Concomitant]
     Active Substance: HYDROCODONE
  30. PANTOPRAZOLE [Concomitant]
     Active Substance: PANTOPRAZOLE
  31. TEMAZEPAM. [Concomitant]
     Active Substance: TEMAZEPAM
  32. VALGANCICLOVIR. [Concomitant]
     Active Substance: VALGANCICLOVIR

REACTIONS (21)
  - Malaise [Unknown]
  - Brain oedema [Unknown]
  - Blood count abnormal [Unknown]
  - Liver transplant rejection [Unknown]
  - Oesophageal variceal ligation [Unknown]
  - Liver transplant [Recovered/Resolved]
  - Fall [Unknown]
  - Confusional state [Recovered/Resolved]
  - Fluid retention [Recovering/Resolving]
  - Vomiting [Recovered/Resolved]
  - Dependence on oxygen therapy [Unknown]
  - Ankle fracture [Unknown]
  - Hepatic failure [Recovered/Resolved]
  - Pyrexia [Recovering/Resolving]
  - Diarrhoea [Recovered/Resolved]
  - Migraine [Unknown]
  - Pneumonia [Recovering/Resolving]
  - Weight increased [Recovering/Resolving]
  - Weight decreased [Unknown]
  - Meningitis [Unknown]
  - Dyspnoea [Unknown]

NARRATIVE: CASE EVENT DATE: 201609
